FAERS Safety Report 5096972-5 (Version None)
Quarter: 2006Q3

REPORT INFORMATION
  Report Type: 
  Country: None (occurrence: None)
  Receive Date: 20060906
  Receipt Date: 20060828
  Transmission Date: 20061208
  Serious: Yes (Other)
  Sender: FDA-Public Use
  Company Number: PHEH2006US11049

PATIENT
  Age: 27 Year
  Sex: Male

DRUGS (3)
  1. LAMISIL [Suspect]
     Indication: ONYCHOMYCOSIS
     Dosage: 250 MG, QD
     Dates: start: 20060601
  2. LAMISIL [Suspect]
     Dosage: 250 MG, QD
     Dates: start: 20060701, end: 20060730
  3. ALCOHOL [Suspect]

REACTIONS (10)
  - DRUG INTERACTION [None]
  - EYE SWELLING [None]
  - HYPERSENSITIVITY [None]
  - MALAISE [None]
  - PRURITUS [None]
  - RASH [None]
  - SKIN DISCOLOURATION [None]
  - SWELLING FACE [None]
  - URTICARIA [None]
  - VIRAL INFECTION [None]
